FAERS Safety Report 5679570-1 (Version None)
Quarter: 2008Q1

REPORT INFORMATION
  Report Type: 
  Country: None (occurrence: None)
  Receive Date: 20080325
  Receipt Date: 20080313
  Transmission Date: 20080703
  Serious: Yes (Death, Hospitalization, Other)
  Sender: FDA-Public Use
  Company Number: GB-PFIZER INC-2008024272

PATIENT
  Sex: Male

DRUGS (2)
  1. EPANUTIN SUSPENSION [Suspect]
  2. TOPIRAMATE [Suspect]

REACTIONS (6)
  - ACCIDENTAL OVERDOSE [None]
  - ANTICONVULSANT DRUG LEVEL DECREASED [None]
  - BRAIN NEOPLASM [None]
  - CEREBRAL HAEMORRHAGE [None]
  - CONVULSION [None]
  - INAPPROPRIATE SCHEDULE OF DRUG ADMINISTRATION [None]
